FAERS Safety Report 10073171 (Version 2)
Quarter: 2014Q2

REPORT INFORMATION
  Report Type: Spontaneous
  Country: DE (occurrence: DE)
  Receive Date: 20140411
  Receipt Date: 20140424
  Transmission Date: 20141212
  Serious: Yes (Other)
  Sender: FDA-Public Use
  Company Number: DE-BAYER-2014-053369

PATIENT
  Age: 57 Year
  Sex: Male

DRUGS (1)
  1. GADOVIST [Suspect]
     Indication: NUCLEAR MAGNETIC RESONANCE IMAGING BRAIN
     Dosage: 8 ML, ONCE
     Dates: start: 20140403, end: 20140403

REACTIONS (3)
  - Dyspnoea [None]
  - Throat tightness [None]
  - Rhinorrhoea [None]
